FAERS Safety Report 18286438 (Version 1)
Quarter: 2020Q3

REPORT INFORMATION
  Report Type: Spontaneous
  Country: CN (occurrence: CN)
  Receive Date: 20200920
  Receipt Date: 20200920
  Transmission Date: 20201103
  Serious: Yes (Hospitalization)
  Sender: FDA-Public Use
  Company Number: CN-UNICHEM PHARMACEUTICALS (USA) INC-UCM202009-001034

PATIENT
  Age: 51 Year
  Sex: Male

DRUGS (1)
  1. ALLOPURINOL. [Suspect]
     Active Substance: ALLOPURINOL
     Indication: GOUT
     Route: 048

REACTIONS (4)
  - Vision blurred [Recovered/Resolved]
  - Photophobia [Recovered/Resolved]
  - Blepharospasm [Recovered/Resolved]
  - Lacrimation increased [Recovered/Resolved]
